FAERS Safety Report 17178838 (Version 1)
Quarter: 2019Q4

REPORT INFORMATION
  Report Type: Spontaneous
  Country: HU (occurrence: HU)
  Receive Date: 20191219
  Receipt Date: 20191219
  Transmission Date: 20200122
  Serious: Yes (Other)
  Sender: FDA-Public Use
  Company Number: NVSC2019HU072870

PATIENT
  Age: 48 Year
  Sex: Female
  Weight: 86 kg

DRUGS (1)
  1. LEVOFLOXACIN SANDOZ [Suspect]
     Active Substance: LEVOFLOXACIN
     Indication: VAGINAL INFECTION
     Dosage: 500 MG, QD (1 TABLET) FOR 7 DAYS
     Route: 048
     Dates: start: 20191030, end: 20191106

REACTIONS (7)
  - Nausea [Recovering/Resolving]
  - Amnesia [Not Recovered/Not Resolved]
  - Arthralgia [Unknown]
  - Migraine [Recovering/Resolving]
  - Joint noise [Unknown]
  - Head discomfort [Not Recovered/Not Resolved]
  - Asthenia [Recovering/Resolving]

NARRATIVE: CASE EVENT DATE: 201911
